FAERS Safety Report 9014101 (Version 1)
Quarter: 2013Q1

REPORT INFORMATION
  Report Type: Other
  Country: GB (occurrence: GB)
  Receive Date: 20130115
  Receipt Date: 20130115
  Transmission Date: 20140127
  Serious: Yes (Other)
  Sender: FDA-Public Use
  Company Number: GB-WATSON-2013-00216

PATIENT
  Sex: Female

DRUGS (1)
  1. CLARITHROMYCIN (UNKNOWN) [Suspect]
     Indication: PRODUCT USED FOR UNKNOWN INDICATION
     Dosage: 500 MG, BID. TAKEN 6 TABETS.
     Route: 048

REACTIONS (4)
  - Anxiety [Unknown]
  - Myalgia [Unknown]
  - Nightmare [Unknown]
  - Insomnia [Unknown]
